FAERS Safety Report 9491706 (Version 1)
Quarter: 2013Q3

REPORT INFORMATION
  Report Type: Not Available
  Country: US (occurrence: US)
  Receive Date: 20130919
  Receipt Date: 20130919
  Transmission Date: 20140515
  Serious: No
  Sender: FDA-Public Use
  Company Number: US-LUNDBECK-DKLU1081107

PATIENT
  Sex: Female

DRUGS (4)
  1. SABRIL (TABLET) [Suspect]
     Indication: EPILEPSY
     Route: 048
     Dates: start: 201203, end: 20120509
  2. TOPIRAMATE [Concomitant]
     Indication: PRODUCT USED FOR UNKNOWN INDICATION
  3. LAMICTAL [Concomitant]
     Indication: PRODUCT USED FOR UNKNOWN INDICATION
  4. ZONEGRAN [Concomitant]
     Indication: PRODUCT USED FOR UNKNOWN INDICATION

REACTIONS (2)
  - Eye pain [Unknown]
  - Headache [Unknown]
